FAERS Safety Report 14419965 (Version 3)
Quarter: 2018Q1

REPORT INFORMATION
  Report Type: Spontaneous
  Country: DE (occurrence: DE)
  Receive Date: 20180122
  Receipt Date: 20180209
  Transmission Date: 20180509
  Serious: Yes (Other)
  Sender: FDA-Public Use
  Company Number: DE-PFIZER INC-2018025153

PATIENT
  Age: 64 Year
  Sex: Male
  Weight: 57 kg

DRUGS (4)
  1. ELIQUIS [Concomitant]
     Active Substance: APIXABAN
     Dosage: UNK
  2. LEVETIRACETAM. [Suspect]
     Active Substance: LEVETIRACETAM
     Dosage: 750 MG, DAILY, DOSE HALVING OF THE MORNING DOSE
     Route: 048
     Dates: start: 201709
  3. LEVETIRACETAM. [Suspect]
     Active Substance: LEVETIRACETAM
     Dosage: 500 MG, 2X/DAY, 1-0-1
     Route: 048
  4. LEVETIRACETAM. [Suspect]
     Active Substance: LEVETIRACETAM
     Indication: EPILEPSY
     Dosage: 2 WEEKS 250 MG (1-0-1), THEN
     Route: 048
     Dates: start: 201705

REACTIONS (9)
  - Fatigue [Recovering/Resolving]
  - Dizziness [Unknown]
  - Weight decreased [Unknown]
  - Pancreatitis [Unknown]
  - Memory impairment [Unknown]
  - Electrocardiogram abnormal [Unknown]
  - Red blood cell count decreased [Unknown]
  - Autoimmune thyroiditis [Unknown]
  - Asthenia [Unknown]

NARRATIVE: CASE EVENT DATE: 201706
